FAERS Safety Report 20536376 (Version 1)
Quarter: 2022Q1

REPORT INFORMATION
  Report Type: Spontaneous
  Country: ZA (occurrence: ZA)
  Receive Date: 20220302
  Receipt Date: 20220302
  Transmission Date: 20220423
  Serious: Yes (Other)
  Sender: FDA-Public Use
  Company Number: ZA-JNJFOC-20211024756

PATIENT
  Age: 36 Year
  Sex: Male

DRUGS (6)
  1. SIRTURO [Suspect]
     Active Substance: BEDAQUILINE FUMARATE
     Indication: Tuberculosis
     Route: 048
  2. LEVOFLOXACIN [Suspect]
     Active Substance: LEVOFLOXACIN
     Indication: Tuberculosis
     Route: 065
  3. LINEZOLID [Suspect]
     Active Substance: LINEZOLID
     Indication: Tuberculosis
     Route: 065
  4. LINEZOLID [Suspect]
     Active Substance: LINEZOLID
     Route: 065
  5. CLOFAZIMINE [Suspect]
     Active Substance: CLOFAZIMINE
     Indication: Tuberculosis
     Route: 065
  6. THIORIDAZINE [Suspect]
     Active Substance: THIORIDAZINE
     Indication: Tuberculosis
     Route: 065

REACTIONS (1)
  - Neuropathy peripheral [Not Recovered/Not Resolved]
